FAERS Safety Report 12646821 (Version 1)
Quarter: 2016Q3

REPORT INFORMATION
  Report Type: Spontaneous
  Country: US (occurrence: US)
  Receive Date: 20160812
  Receipt Date: 20160812
  Transmission Date: 20161109
  Serious: No
  Sender: FDA-Public Use
  Company Number: US-BEH-2016072202

PATIENT
  Sex: Female
  Weight: 27.21 kg

DRUGS (6)
  1. LAMOTRIGINE. [Concomitant]
     Active Substance: LAMOTRIGINE
  2. HIZENTRA [Suspect]
     Active Substance: HUMAN IMMUNOGLOBULIN G
     Indication: IMMUNODEFICIENCY
     Dosage: 3 G, QW
     Route: 058
     Dates: start: 20151116
  3. LIDOCAINE. [Concomitant]
     Active Substance: LIDOCAINE
  4. EPIPEN [Concomitant]
     Active Substance: EPINEPHRINE
  5. NASONEX [Concomitant]
     Active Substance: MOMETASONE FUROATE
  6. ONFI [Concomitant]
     Active Substance: CLOBAZAM

REACTIONS (4)
  - Hyperhidrosis [Unknown]
  - Administration site pain [Unknown]
  - Headache [Unknown]
  - Fatigue [Unknown]
